FAERS Safety Report 12773434 (Version 1)
Quarter: 2016Q3

REPORT INFORMATION
  Report Type: Spontaneous
  Country: CA (occurrence: CA)
  Receive Date: 20160922
  Receipt Date: 20160922
  Transmission Date: 20161109
  Serious: Yes (Other)
  Sender: FDA-Public Use
  Company Number: CA-009507513-1609CAN006263

PATIENT
  Age: 63 Year
  Sex: Male
  Weight: 93 kg

DRUGS (1)
  1. IVERMECTIN. [Suspect]
     Active Substance: IVERMECTIN
     Indication: STRONGYLOIDIASIS
     Dosage: 200 MG/KG, QD (ALSO REPORTED AS 24 MG DAILY)
     Route: 048
     Dates: start: 20160825, end: 20160901

REACTIONS (7)
  - Renal function test abnormal [Unknown]
  - White blood cell count abnormal [Unknown]
  - Blood alkaline phosphatase increased [Unknown]
  - Urine analysis abnormal [Unknown]
  - Renal function test abnormal [Unknown]
  - Weight fluctuation [Unknown]
  - White blood cell count abnormal [Unknown]

NARRATIVE: CASE EVENT DATE: 201608
